FAERS Safety Report 24467179 (Version 1)
Quarter: 2024Q4

REPORT INFORMATION
  Report Type: Spontaneous
  Country: US (occurrence: US)
  Receive Date: 20241018
  Receipt Date: 20241018
  Transmission Date: 20250115
  Serious: No
  Sender: ROCHE
  Company Number: US-ROCHE-3554343

PATIENT
  Sex: Female

DRUGS (3)
  1. XOLAIR [Suspect]
     Active Substance: OMALIZUMAB
     Indication: Asthma
     Dosage: STRENGTH 150MG/ML
     Route: 058
     Dates: start: 202312
  2. XOLAIR [Suspect]
     Active Substance: OMALIZUMAB
  3. FASENRA [Concomitant]
     Active Substance: BENRALIZUMAB

REACTIONS (1)
  - Swelling face [Unknown]
